FAERS Safety Report 9880248 (Version 1)
Quarter: 2014Q1

REPORT INFORMATION
  Report Type: Spontaneous
  Country: NL (occurrence: NL)
  Receive Date: 20140207
  Receipt Date: 20140207
  Transmission Date: 20141002
  Serious: Yes (Hospitalization)
  Sender: FDA-Public Use
  Company Number: NL-ASTRAZENECA-2014SE07378

PATIENT
  Age: 55 Year
  Sex: Female

DRUGS (15)
  1. BRILIQUE [Suspect]
     Indication: ISCHAEMIC HEART DISEASE PROPHYLAXIS
     Route: 048
     Dates: start: 20121218, end: 20140119
  2. ROTER NOSCAPECT DRAGEE [Interacting]
     Indication: COUGH
     Route: 048
     Dates: start: 20140117, end: 20140119
  3. CARBASALAATCALCIUM CARDIO [Interacting]
     Indication: ISCHAEMIC HEART DISEASE PROPHYLAXIS
     Route: 048
     Dates: start: 20121218, end: 20140119
  4. OMEPRAZOL [Concomitant]
     Route: 048
  5. AMLODIPINE BESILATE [Concomitant]
     Route: 048
  6. ARTELAC [Concomitant]
     Dosage: 46D1, 2MG/ML FLACON 10ML, 1 GTT, FOUR TIMES A DAY
     Route: 047
  7. EZETROL [Concomitant]
     Route: 048
  8. DOMPERIDON [Concomitant]
     Route: 048
  9. METFORMINE [Concomitant]
     Route: 048
  10. NITROLINGUAL [Concomitant]
     Dosage: OROMUCOSALE SPRAY 0.4MG/DO FLAC 250DO, 1 DF
     Route: 048
  11. ISOSORBIDEMONONITRAAT [Concomitant]
     Route: 048
  12. BISOPROLOL [Concomitant]
     Route: 048
  13. PERINDOPRIL ERBUMINE [Concomitant]
     Route: 048
  14. SIMVASTATINE RANBAXY [Concomitant]
     Route: 048
  15. MACROGOL/ZOUTEN PDR V DRANK (MOVICOLON+GENERIEK) [Concomitant]
     Route: 048

REACTIONS (2)
  - Drug interaction [Recovered/Resolved]
  - Epistaxis [Recovered/Resolved]
